FAERS Safety Report 5580474-3 (Version None)
Quarter: 2007Q4

REPORT INFORMATION
  Report Type: 
  Country: None (occurrence: None)
  Receive Date: 20071130
  Receipt Date: 20070717
  Transmission Date: 20080405
  Serious: No
  Sender: FDA-Public Use
  Company Number: US200707004343

PATIENT
  Age: 73 Year
  Sex: Male
  Weight: 97.5 kg

DRUGS (4)
  1. BYETTA [Suspect]
     Indication: TYPE 2 DIABETES MELLITUS
     Dosage: SEE IMAGE
     Route: 058
     Dates: start: 20070101, end: 20070101
  2. BYETTA [Suspect]
     Indication: TYPE 2 DIABETES MELLITUS
     Dosage: SEE IMAGE
     Route: 058
     Dates: start: 20060101
  3. BYETTA [Suspect]
     Indication: TYPE 2 DIABETES MELLITUS
     Dosage: SEE IMAGE
     Route: 058
     Dates: start: 20070501
  4. METFORMIN HCL [Concomitant]

REACTIONS (8)
  - ABDOMINAL PAIN LOWER [None]
  - ANXIETY [None]
  - BLOOD GLUCOSE INCREASED [None]
  - CONSTIPATION [None]
  - FEELING HOT [None]
  - FLUSHING [None]
  - NERVOUSNESS [None]
  - WEIGHT DECREASED [None]
